FAERS Safety Report 18326644 (Version 1)
Quarter: 2020Q3

REPORT INFORMATION
  Report Type: Spontaneous
  Country: DE (occurrence: DE)
  Receive Date: 20200929
  Receipt Date: 20200929
  Transmission Date: 20201103
  Serious: Yes (Life-Threatening, Hospitalization)
  Sender: FDA-Public Use
  Company Number: DE-MYLANLABS-2020M1082063

PATIENT
  Age: 75 Year
  Sex: Female

DRUGS (5)
  1. CANDESARTAN. [Concomitant]
     Active Substance: CANDESARTAN
     Dosage: 40 MILLIGRAM, QD (4 MG, 0?1?0?0)
  2. BIPERIDEN [Concomitant]
     Active Substance: BIPERIDEN
     Dosage: 2 MILLIGRAM, TID (2 MG, 1?1?1?0)
  3. FUROSEMID                          /00032601/ [Concomitant]
     Active Substance: FUROSEMIDE
     Dosage: 20 MILLIGRAM, QD (20 MG, 1?0?0?0)
  4. BISOPROLOL [Suspect]
     Active Substance: BISOPROLOL
     Indication: PRODUCT USED FOR UNKNOWN INDICATION
     Dosage: 2.5 MILLIGRAM, QD (2.5 MG, 1?0?0?0)
  5. PERAZINE [Suspect]
     Active Substance: PERAZINE
     Indication: PRODUCT USED FOR UNKNOWN INDICATION
     Dosage: 100 MILLIGRAM, TID (100 MG, 1?1?1?0)

REACTIONS (5)
  - Condition aggravated [Unknown]
  - Musculoskeletal pain [Unknown]
  - Fall [Unknown]
  - Constipation [Unknown]
  - General physical health deterioration [Unknown]
